FAERS Safety Report 26173702 (Version 1)
Quarter: 2025Q4

REPORT INFORMATION
  Report Type: Spontaneous
  Country: US (occurrence: US)
  Receive Date: 20251218
  Receipt Date: 20251218
  Transmission Date: 20260117
  Serious: No
  Sender: TRIS PHARMA, INC.
  Company Number: US-TRIS PHARMA, INC.-25US012186

PATIENT
  Age: 14 Year

DRUGS (7)
  1. QUILLIVANT XR [Suspect]
     Active Substance: METHYLPHENIDATE HYDROCHLORIDE
     Indication: Attention deficit hyperactivity disorder
     Dosage: 5 MILLILITRE (25 MG), QD (EVERY MORNING)
     Route: 061
  2. QUILLIVANT XR [Suspect]
     Active Substance: METHYLPHENIDATE HYDROCHLORIDE
     Dosage: 3 MILLILITRE (15 MG)
     Route: 061
  3. QUILLIVANT XR [Suspect]
     Active Substance: METHYLPHENIDATE HYDROCHLORIDE
     Dosage: 6 MILLILITRE (30 MG)
     Route: 061
  4. RISPERIDONE [Concomitant]
     Active Substance: RISPERIDONE
     Indication: Product used for unknown indication
     Dosage: 1 MILLIGRAM
  5. CARBATROL [Concomitant]
     Active Substance: CARBAMAZEPINE
     Indication: Impulse-control disorder
     Dosage: 100 MILLIGRAM, BID
  6. CARBATROL [Concomitant]
     Active Substance: CARBAMAZEPINE
     Indication: Aggression
  7. CLONIDINE [Concomitant]
     Active Substance: CLONIDINE
     Indication: Product used for unknown indication
     Dosage: AT NIGHT

REACTIONS (2)
  - Off label use [Unknown]
  - Product dose omission issue [Unknown]
